FAERS Safety Report 12703478 (Version 2)
Quarter: 2016Q3

REPORT INFORMATION
  Report Type: Spontaneous
  Country: US (occurrence: US)
  Receive Date: 20160831
  Receipt Date: 20160906
  Transmission Date: 20161109
  Serious: No
  Sender: FDA-Public Use
  Company Number: US-PFIZER INC-2016411217

PATIENT
  Age: 66 Year
  Sex: Female
  Weight: 108.86 kg

DRUGS (2)
  1. LYRICA [Suspect]
     Active Substance: PREGABALIN
     Indication: FIBROMYALGIA
     Dosage: 75MG, ONE CAPSULE IN THE MORNING AND AT NIGHT
     Route: 048
     Dates: start: 20160710
  2. OXYCODONE [Concomitant]
     Active Substance: OXYCODONE
     Indication: PAIN
     Dosage: 5MG, TABLET, BY MOUTH, UP TO 3 A DAY OR 4 A DAY, 6 HOURS BETWEEN DOSES
     Route: 048

REACTIONS (3)
  - Drug dose omission [Unknown]
  - Personality change [Not Recovered/Not Resolved]
  - Pain [Unknown]

NARRATIVE: CASE EVENT DATE: 20160817
